FAERS Safety Report 11651448 (Version 1)
Quarter: 2015Q4

REPORT INFORMATION
  Report Type: Spontaneous
  Country: IT (occurrence: IT)
  Receive Date: 20151022
  Receipt Date: 20151022
  Transmission Date: 20160304
  Serious: Yes (Other)
  Sender: FDA-Public Use
  Company Number: IT-ASTRAZENECA-2015SF00641

PATIENT
  Age: 76 Year
  Sex: Female

DRUGS (11)
  1. LEVODOPA/CARBIDOPA [Concomitant]
     Active Substance: CARBIDOPA\LEVODOPA
     Indication: PARKINSON^S DISEASE
     Dosage: 500/125 MG/D
  2. QUETIAPINE [Suspect]
     Active Substance: QUETIAPINE
     Indication: HALLUCINATION, VISUAL
     Route: 048
  3. AMITRIPTYLINE HYDROCHLORIDE/CHLORDIAZEPOXIDE [Concomitant]
     Indication: ANXIETY
     Dosage: 12.5/5 MG DAILY
  4. AMITRIPTYLINE HYDROCHLORIDE/CHLORDIAZEPOXIDE [Concomitant]
     Indication: DEPRESSIVE SYMPTOM
     Dosage: 12.5/5 MG DAILY
  5. QUETIAPINE [Suspect]
     Active Substance: QUETIAPINE
     Indication: HALLUCINATION, VISUAL
     Dosage: GRADUALLY INCREASED UP TO 50 MG AT NIGHT
     Route: 048
  6. LEVODOPA/BENSERAZIDE [Concomitant]
     Active Substance: BENSERAZIDE\LEVODOPA
     Indication: PARKINSON^S DISEASE
     Dosage: 50/12.5 MG QID
  7. QUETIAPINE [Suspect]
     Active Substance: QUETIAPINE
     Indication: HALLUCINATION, VISUAL
     Dosage: INCREASED UP TO 75 MG
     Route: 048
  8. LEVODOPA/BENSERAZIDE [Concomitant]
     Active Substance: BENSERAZIDE\LEVODOPA
     Indication: PARKINSON^S DISEASE
     Dosage: 50/12.5 MG 6 TIMES DAILY
  9. QUETIAPINE [Suspect]
     Active Substance: QUETIAPINE
     Indication: HALLUCINATION, VISUAL
     Route: 048
  10. LEVODOPA/CARBIDOPA [Concomitant]
     Active Substance: CARBIDOPA\LEVODOPA
     Indication: PARKINSON^S DISEASE
     Dosage: 6 TIMES DAILY
  11. SELEGILINE [Concomitant]
     Active Substance: SELEGILINE
     Indication: PARKINSON^S DISEASE

REACTIONS (2)
  - Motor dysfunction [Recovering/Resolving]
  - Cotard^s syndrome [Recovering/Resolving]
